FAERS Safety Report 4674516-7 (Version None)
Quarter: 2005Q2

REPORT INFORMATION
  Report Type: 
  Country: None (occurrence: None)
  Receive Date: 20050524
  Receipt Date: 20050513
  Transmission Date: 20051028
  Serious: Yes (Life-Threatening, Hospitalization)
  Sender: FDA-Public Use
  Company Number: 20050500122

PATIENT
  Age: 67 Year
  Sex: Male

DRUGS (7)
  1. HEPARIN (BAXTER) [Suspect]
     Dosage: 5000 IV
     Route: 042
     Dates: start: 20040707
  2. INTEGRILIN [Suspect]
     Dosage: 6.8 CC BOLUS IV
     Route: 042
     Dates: start: 20040707, end: 20040707
  3. INTEGRILIN [Suspect]
     Dosage: 6.8 CC BOLUS IV
     Route: 042
     Dates: start: 20040707, end: 20040707
  4. INTEGRILIN [Suspect]
     Dosage: 12 ML CONTINUOUS IV
     Route: 042
     Dates: start: 20040707, end: 20040707
  5. LEVONEX (ENOXAPARIN) [Suspect]
     Dosage: 1 MGKG SC
     Route: 058
     Dates: start: 20040707, end: 20040707
  6. ASPIRIN [Suspect]
     Dates: start: 20050707
  7. NITROGLYCERIN [Suspect]
     Dosage: 200 MCG ONCE IC
     Route: 016
     Dates: start: 20040707, end: 20040707

REACTIONS (4)
  - CEREBROVASCULAR ACCIDENT [None]
  - DYSARTHRIA [None]
  - HYPOTENSION [None]
  - PROCEDURAL COMPLICATION [None]
